FAERS Safety Report 24005893 (Version 1)
Quarter: 2024Q2

REPORT INFORMATION
  Report Type: Spontaneous
  Country: US (occurrence: US)
  Receive Date: 20240624
  Receipt Date: 20240624
  Transmission Date: 20240716
  Serious: No
  Sender: FDA-Public Use
  Company Number: US-SA-SAC20240620001243

PATIENT
  Age: 62 Year
  Sex: Male
  Weight: 80.73 kg

DRUGS (3)
  1. DUPIXENT [Suspect]
     Active Substance: DUPILUMAB
     Indication: Dermatitis atopic
     Dosage: 300 MG, QOW
     Route: 058
  2. CIALIS [Concomitant]
     Active Substance: TADALAFIL
     Dosage: UNK
  3. OCALIVA [Concomitant]
     Active Substance: OBETICHOLIC ACID
     Dosage: UNK

REACTIONS (1)
  - Rotator cuff repair [Unknown]

NARRATIVE: CASE EVENT DATE: 20240502
